FAERS Safety Report 8734027 (Version 2)
Quarter: 2012Q4

REPORT INFORMATION
  Report Type: 
  Country: US (occurrence: US)
  Receive Date: 20120821
  Receipt Date: 20120906
  Transmission Date: 20130627
  Serious: No
  Sender: FDA-Public Use
  Company Number: US-BAYER-2012-083421

PATIENT
  Age: 18 Year
  Sex: Female

DRUGS (1)
  1. MIRENA [Suspect]
     Indication: CONTRACEPTION
     Dosage: 20 mcg/24hr, CONT
     Route: 015
     Dates: start: 20120521, end: 20120718

REACTIONS (3)
  - Device expulsion [Recovered/Resolved]
  - Sensation of pressure [Recovered/Resolved]
  - Patient-device incompatibility [Recovered/Resolved]
